FAERS Safety Report 9655605 (Version 2)
Quarter: 2013Q4

REPORT INFORMATION
  Report Type: Report from Study
  Country: DE (occurrence: DE)
  Receive Date: 20131030
  Receipt Date: 20131105
  Transmission Date: 20140711
  Serious: Yes (Hospitalization)
  Sender: FDA-Public Use
  Company Number: DE-AMGEN-DEUCT2013075386

PATIENT
  Age: 61 Year
  Sex: Male
  Weight: 53 kg

DRUGS (6)
  1. PANITUMUMAB [Suspect]
     Indication: OESOPHAGEAL CARCINOMA
     Dosage: 486 MG, Q3WK
     Route: 042
     Dates: start: 20130801
  2. CISPLATIN [Concomitant]
     Dosage: 125.6 MG, Q3WK
     Route: 042
     Dates: start: 20130801
  3. 5-FU                               /00098801/ [Concomitant]
     Dosage: 6280 MG, Q3WK
     Route: 042
     Dates: start: 20130801
  4. UDIMA [Concomitant]
     Dosage: 100 UNK, QD
     Dates: start: 20130801
  5. CIPROFLOXACIN [Concomitant]
     Dosage: 500 UNK, BID
     Dates: start: 20130801
  6. PANTOZOL                           /01263204/ [Concomitant]
     Dosage: 40 UNK, QD
     Dates: start: 20130801

REACTIONS (2)
  - Skin lesion [Not Recovered/Not Resolved]
  - Rash [Not Recovered/Not Resolved]
